FAERS Safety Report 19423319 (Version 3)
Quarter: 2021Q3

REPORT INFORMATION
  Report Type: Spontaneous
  Country: US (occurrence: US)
  Receive Date: 20210616
  Receipt Date: 20210816
  Transmission Date: 20211014
  Serious: No
  Sender: FDA-Public Use
  Company Number: US-ASTRAZENECA-2021A523658

PATIENT
  Sex: Female
  Weight: 81.6 kg

DRUGS (5)
  1. VITAMIN D [Concomitant]
     Active Substance: VITAMIN D NOS
     Route: 065
  2. VITAMIN B [Concomitant]
     Active Substance: VITAMIN B
     Route: 065
  3. SINGULAIR [Concomitant]
     Active Substance: MONTELUKAST SODIUM
     Route: 065
  4. SYMBICORT [Suspect]
     Active Substance: BUDESONIDE\FORMOTEROL FUMARATE DIHYDRATE
     Indication: ASTHMA
     Dosage: 80/4.5MCG 2 PUFFS BID
     Route: 055
  5. VITAMIN C [Concomitant]
     Active Substance: ASCORBIC ACID
     Route: 065

REACTIONS (3)
  - Cough [Unknown]
  - Drug ineffective [Unknown]
  - Wrong technique in device usage process [Unknown]
